FAERS Safety Report 7351484-0 (Version None)
Quarter: 2011Q1

REPORT INFORMATION
  Report Type: 
  Country: None (occurrence: None)
  Receive Date: 20110314
  Receipt Date: 20110304
  Transmission Date: 20110831
  Serious: Yes (Hospitalization, Other)
  Sender: FDA-Public Use
  Company Number: US-MERCK-1012USA02521

PATIENT
  Age: 54 Year
  Sex: Female
  Weight: 52 kg

DRUGS (5)
  1. FOSAMAX [Suspect]
     Indication: OSTEOPOROSIS
     Route: 048
     Dates: start: 19991102, end: 20060501
  2. CALCIUM (UNSPECIFIED) [Concomitant]
     Route: 065
     Dates: start: 19870101
  3. FOSAMAX PLUS D [Suspect]
     Indication: OSTEOPENIA
     Route: 048
     Dates: start: 20060601, end: 20100707
  4. FOSAMAX [Suspect]
     Indication: OSTEOPENIA
     Route: 048
     Dates: start: 19991102, end: 20060501
  5. VITAMIN D (UNSPECIFIED) [Concomitant]
     Route: 065
     Dates: start: 19870101

REACTIONS (26)
  - HEADACHE [None]
  - BACK PAIN [None]
  - MUSCULOSKELETAL PAIN [None]
  - BURSITIS [None]
  - LOW TURNOVER OSTEOPATHY [None]
  - INTERVERTEBRAL DISC PROTRUSION [None]
  - FIBROCYSTIC BREAST DISEASE [None]
  - LACERATION [None]
  - SPINAL OSTEOARTHRITIS [None]
  - FEMUR FRACTURE [None]
  - PAIN IN EXTREMITY [None]
  - ARTHRITIS [None]
  - ARTHRALGIA [None]
  - MYOFASCIAL PAIN SYNDROME [None]
  - MUSCLE STRAIN [None]
  - COCCYDYNIA [None]
  - BLOOD POTASSIUM DECREASED [None]
  - ATRIAL FIBRILLATION [None]
  - INTERVERTEBRAL DISC DEGENERATION [None]
  - HYPERTENSION [None]
  - MUSCLE SPASMS [None]
  - FALL [None]
  - ROTATOR CUFF SYNDROME [None]
  - DEVICE FAILURE [None]
  - STRESS [None]
  - BLOOD CHOLESTEROL INCREASED [None]
